FAERS Safety Report 8030168-X (Version None)
Quarter: 2012Q1

REPORT INFORMATION
  Report Type: 
  Country: None (occurrence: None)
  Receive Date: 20120109
  Receipt Date: 20120102
  Transmission Date: 20120608
  Serious: Yes (Death)
  Sender: FDA-Public Use
  Company Number: US-BAYER-2012-001062

PATIENT
  Age: 25 Year
  Sex: Female

DRUGS (7)
  1. SALICYLATES [Suspect]
  2. DIAZEPAM [Suspect]
  3. ETHANOL [Suspect]
  4. PARACETAMOL + DIPHENHYDRAMINE [Suspect]
  5. MORPHINE [Suspect]
  6. COCAINE [Suspect]
  7. OPIOIDS [Suspect]

REACTIONS (1)
  - TOXICITY TO VARIOUS AGENTS [None]
